FAERS Safety Report 10233444 (Version 1)
Quarter: 2014Q2

REPORT INFORMATION
  Report Type: Spontaneous
  Country: CA (occurrence: None)
  Receive Date: 20140610
  Receipt Date: 20140610
  Transmission Date: 20141212
  Serious: Yes (Other)
  Sender: FDA-Public Use
  Company Number: 2366375

PATIENT
  Age: 35 Year
  Sex: Female

DRUGS (1)
  1. MARCAINE SPINAL (BUPIVACAINE IN DEXTROSE INJ, USP), UNI-AMP (BUPIVACAINE HYDROCHLORIDE) [Suspect]
     Indication: CAESAREAN SECTION
     Route: 037
     Dates: start: 20140515, end: 20140515

REACTIONS (11)
  - Exposure during pregnancy [None]
  - Anaesthetic complication [None]
  - Uterine atony [None]
  - Haemorrhage [None]
  - Haemodynamic instability [None]
  - Caesarean section [None]
  - Drug effect decreased [None]
  - Product measured potency issue [None]
  - Wrong technique in drug usage process [None]
  - Medication error [None]
  - Product quality issue [None]
